FAERS Safety Report 16489314 (Version 1)
Quarter: 2019Q2

REPORT INFORMATION
  Report Type: Spontaneous
  Country: JP (occurrence: JP)
  Receive Date: 20190628
  Receipt Date: 20190628
  Transmission Date: 20190711
  Serious: Yes (Other)
  Sender: FDA-Public Use
  Company Number: GXJP2016JP001459

PATIENT
  Sex: Female
  Weight: 2.15 kg

DRUGS (10)
  1. HEPARIN [Suspect]
     Active Substance: HEPARIN SODIUM
     Indication: FOETAL EXPOSURE DURING PREGNANCY
     Dosage: MATERNL DOSE: 10000 IU, QD
     Route: 064
  2. UTERON INTRAVENOUS INFUSION [Suspect]
     Active Substance: RITODRINE HYDROCHLORIDE
     Dosage: MATERNAL DOSE: 133 UG, 1 MIN (VOLUME OF RITODRINE WAS INCREASED)
     Route: 064
  3. UTERON INTRAVENOUS INFUSION [Suspect]
     Active Substance: RITODRINE HYDROCHLORIDE
     Dosage: MATERNAL DOSE: 83 MCG/MIN
     Route: 064
  4. MAGNESIUM SULFATE. [Suspect]
     Active Substance: MAGNESIUM SULFATE
     Dosage: MATERNAL DOSE: 1.6G/H
     Route: 064
  5. UTERON INTRAVENOUS INFUSION [Suspect]
     Active Substance: RITODRINE HYDROCHLORIDE
     Indication: FOETAL EXPOSURE DURING PREGNANCY
     Dosage: MATERNAL DOSE: 665 UG, Q5N
     Route: 064
  6. HYDROCORTISONE. [Suspect]
     Active Substance: HYDROCORTISONE
     Indication: FOETAL EXPOSURE DURING PREGNANCY
     Dosage: MATERNAL DOSE:600 MG, 1X/DAY
     Route: 064
  7. MAGNESIUM SULFATE. [Suspect]
     Active Substance: MAGNESIUM SULFATE
     Indication: FOETAL EXPOSURE DURING PREGNANCY
     Dosage: MATERNAL DOSE: 0.8G/H
     Route: 064
  8. ARGATROBAN. [Suspect]
     Active Substance: ARGATROBAN
     Indication: FOETAL EXPOSURE DURING PREGNANCY
     Dosage: UNK
     Route: 064
  9. CLOPIDOGREL [Suspect]
     Active Substance: CLOPIDOGREL BISULFATE
     Indication: FOETAL EXPOSURE DURING PREGNANCY
     Dosage: MATERNAL DOSE: 75 MG, QD
     Route: 064
  10. ASPIRIN. [Suspect]
     Active Substance: ASPIRIN
     Indication: FOETAL EXPOSURE DURING PREGNANCY
     Dosage: MATERNAL DOSE: 100 MG, QD
     Route: 064

REACTIONS (3)
  - Low birth weight baby [Unknown]
  - Premature baby [Unknown]
  - Foetal exposure during pregnancy [Unknown]
